FAERS Safety Report 10626984 (Version 2)
Quarter: 2014Q4

REPORT INFORMATION
  Report Type: Report from Study
  Country: US (occurrence: US)
  Receive Date: 20141204
  Receipt Date: 20141210
  Transmission Date: 20150529
  Serious: Yes (Hospitalization, Other)
  Sender: FDA-Public Use
  Company Number: US-ABBVIE-14K-163-1315516-00

PATIENT
  Age: 72 Year
  Sex: Male
  Weight: 72.64 kg

DRUGS (7)
  1. HUMIRA [Suspect]
     Active Substance: ADALIMUMAB
     Indication: CROHN^S DISEASE
     Route: 065
     Dates: start: 20140801
  2. PREDNISONE. [Concomitant]
     Active Substance: PREDNISONE
     Dates: start: 201409
  3. PREDNISONE. [Concomitant]
     Active Substance: PREDNISONE
     Dosage: GETTING DOWN TO 5 MG
     Dates: start: 2014
  4. PREDNISONE. [Concomitant]
     Active Substance: PREDNISONE
     Dates: start: 201409, end: 201409
  5. HUMIRA [Suspect]
     Active Substance: ADALIMUMAB
     Route: 065
     Dates: start: 20140912, end: 201411
  6. PREDNISONE. [Concomitant]
     Active Substance: PREDNISONE
     Dosage: TAPERED DOWN FROM 40MG BY 5 MG WEEKLY
     Dates: start: 2014, end: 2014
  7. PREDNISONE. [Concomitant]
     Active Substance: PREDNISONE
     Indication: CROHN^S DISEASE
     Dates: end: 2014

REACTIONS (6)
  - Electrolyte imbalance [Unknown]
  - Drug ineffective [Not Recovered/Not Resolved]
  - Fatigue [Unknown]
  - Dehydration [Unknown]
  - Atrial fibrillation [Unknown]
  - Frequent bowel movements [Recovering/Resolving]

NARRATIVE: CASE EVENT DATE: 2014
